FAERS Safety Report 4328635-5 (Version None)
Quarter: 2004Q2

REPORT INFORMATION
  Report Type: 
  Country: None (occurrence: None)
  Receive Date: 20040401
  Receipt Date: 20040325
  Transmission Date: 20050107
  Serious: Yes (Hospitalization)
  Sender: FDA-Public Use
  Company Number: PHBS2004AT04082

PATIENT
  Age: 14 Year
  Sex: Female

DRUGS (7)
  1. NEORAL [Suspect]
     Indication: BONE MARROW TRANSPLANT
     Dosage: 50 MG, BID
     Route: 048
  2. VFEND [Suspect]
     Dosage: 200 MG, BID
     Route: 042
     Dates: end: 20031115
  3. APREDNISLON [Concomitant]
     Dosage: 37.5 MG, TID
     Route: 048
  4. ORGAMETRIL [Concomitant]
     Dosage: 1 DF, QD
     Route: 048
  5. SPORANOX [Concomitant]
     Dosage: 100 MG, QD
     Route: 048
  6. SUCRALAN [Concomitant]
     Dosage: 1 G, TID
     Route: 048
  7. ZOVIRAX [Concomitant]
     Dosage: 250 MG, TID
     Route: 042

REACTIONS (3)
  - CONVULSION [None]
  - DRUG LEVEL INCREASED [None]
  - VASCULITIS CEREBRAL [None]
